FAERS Safety Report 9947367 (Version 1)
Quarter: 2014Q1

REPORT INFORMATION
  Report Type: Spontaneous
  Country: US (occurrence: US)
  Receive Date: 20140303
  Receipt Date: 20140303
  Transmission Date: 20141002
  Serious: No
  Sender: FDA-Public Use
  Company Number: US-ABBVIE-13P-163-1058759-00

PATIENT
  Age: 60 Year
  Sex: Male

DRUGS (2)
  1. HUMIRA [Suspect]
     Indication: SPONDYLOARTHROPATHY
     Route: 058
     Dates: start: 2010, end: 201212
  2. HUMIRA [Suspect]
     Route: 058
     Dates: start: 201302

REACTIONS (2)
  - Prostatitis [Recovered/Resolved]
  - Prostatitis [Recovered/Resolved]
